FAERS Safety Report 9102784 (Version 1)
Quarter: 2013Q1

REPORT INFORMATION
  Report Type: Report from Study
  Country: US (occurrence: US)
  Receive Date: 20130219
  Receipt Date: 20130219
  Transmission Date: 20140127
  Serious: Yes (Other)
  Sender: FDA-Public Use
  Company Number: US-RB-008139-10

PATIENT
  Age: 23 Year
  Sex: Male

DRUGS (4)
  1. SUBOXONE [Suspect]
     Indication: DRUG DEPENDENCE
     Dosage: DOSING INFORMATION UNKNOWN
  2. CANNABIS SATIVA SUBSP. INDICA TOP [Suspect]
     Indication: DRUG ABUSE
     Dosage: DOSING INFORMATION UNKNOWN
  3. SUBOXONE FILM [Suspect]
     Indication: DRUG DEPENDENCE
     Route: 060
     Dates: start: 2010
  4. CLONAZEPAM [Concomitant]
     Indication: ANXIETY
     Dosage: AS NEEDED
     Route: 065

REACTIONS (9)
  - Mood swings [Not Recovered/Not Resolved]
  - Somnolence [Not Recovered/Not Resolved]
  - Drug dependence [Recovered/Resolved]
  - Intentional drug misuse [Recovered/Resolved]
  - Panic attack [Recovered/Resolved]
  - Headache [Recovered/Resolved]
  - Constipation [Not Recovered/Not Resolved]
  - Haematochezia [Not Recovered/Not Resolved]
  - Onychophagia [Not Recovered/Not Resolved]
